APPROVED DRUG PRODUCT: RELPAX
Active Ingredient: ELETRIPTAN HYDROBROMIDE
Strength: EQ 20MG BASE
Dosage Form/Route: TABLET;ORAL
Application: N021016 | Product #001 | TE Code: AB
Applicant: UPJOHN MANUFACTURING IRELAND UNLTD
Approved: Dec 26, 2002 | RLD: Yes | RS: No | Type: RX